FAERS Safety Report 9719098 (Version 2)
Quarter: 2013Q4

REPORT INFORMATION
  Report Type: Report from Study
  Country: PR (occurrence: PR)
  Receive Date: 20131127
  Receipt Date: 20131127
  Transmission Date: 20140711
  Serious: Yes (Other)
  Sender: FDA-Public Use
  Company Number: PR-ABBVIE-13P-131-1150735-00

PATIENT
  Sex: Female
  Weight: 87.62 kg

DRUGS (12)
  1. HUMIRA [Suspect]
     Indication: RHEUMATOID ARTHRITIS
     Route: 058
  2. ADVIL [Suspect]
     Indication: PAIN
     Route: 048
  3. ADVIL [Suspect]
     Indication: HYPERTENSION
  4. METHOTREXATE [Concomitant]
     Indication: RHEUMATOID ARTHRITIS
     Route: 048
  5. UNKNOWN MEDICATION [Concomitant]
     Indication: RHEUMATOID ARTHRITIS
     Route: 048
  6. PREDNISONE [Concomitant]
     Indication: RHEUMATOID ARTHRITIS
     Route: 048
  7. ASPIRIN [Concomitant]
     Indication: HYPERTENSION
     Route: 048
  8. UNKNOWN MEDICATION [Concomitant]
     Indication: HYPERTENSION
     Route: 048
  9. LISINOPRIL [Concomitant]
     Indication: PALPITATIONS
     Route: 048
  10. ZANAX [Concomitant]
     Indication: INSOMNIA
     Route: 048
  11. ZANTAC [Concomitant]
     Indication: GASTRIC DISORDER
     Route: 048
  12. ZANTAC [Concomitant]
     Indication: PROPHYLAXIS

REACTIONS (8)
  - Cardiomegaly [Not Recovered/Not Resolved]
  - Cardiac disorder [Unknown]
  - Arthritis [Not Recovered/Not Resolved]
  - Rash macular [Unknown]
  - Hypertension [Not Recovered/Not Resolved]
  - Blood pressure inadequately controlled [Not Recovered/Not Resolved]
  - Palpitations [Not Recovered/Not Resolved]
  - Rash macular [Not Recovered/Not Resolved]
